FAERS Safety Report 13416029 (Version 2)
Quarter: 2017Q2

REPORT INFORMATION
  Report Type: Report from Study
  Country: DE (occurrence: DE)
  Receive Date: 20170407
  Receipt Date: 20170426
  Transmission Date: 20170830
  Serious: Yes (Life-Threatening, Hospitalization)
  Sender: FDA-Public Use
  Company Number: DE-JNJFOC-20170405601

PATIENT
  Sex: Female

DRUGS (30)
  1. PROPOFOL. [Concomitant]
     Active Substance: PROPOFOL
     Route: 065
  2. FRESUBIN [Concomitant]
     Active Substance: AMINO ACIDS\DEXTROSE\ELECTROLYTES NOS\SOYBEAN OIL\VITAMINS
     Route: 065
     Dates: start: 20170329, end: 20170329
  3. TACHOLIQUIN [Concomitant]
     Route: 065
     Dates: start: 20170328, end: 20170329
  4. STEROFUNDIN [Concomitant]
     Active Substance: CALCIUM CHLORIDE\MAGNESIUM CHLORIDE\POTASSIUM CHLORIDE\SODIUM ACETATE\SODIUM CHLORIDE
     Route: 065
     Dates: start: 20170328, end: 20170329
  5. PROPOFOL. [Concomitant]
     Active Substance: PROPOFOL
     Route: 065
  6. INSULIN [Concomitant]
     Active Substance: INSULIN NOS
     Route: 065
  7. FIBRINOGEN [Concomitant]
     Active Substance: FIBRINOGEN HUMAN
     Route: 065
  8. XARELTO [Suspect]
     Active Substance: RIVAROXABAN
     Indication: ATRIAL FIBRILLATION
     Route: 048
     Dates: start: 201412, end: 20170328
  9. PROTHROMBIN COMPLEX CONCENTRATE NOS [Concomitant]
     Active Substance: COAGULATION FACTOR IX HUMAN\COAGULATION FACTOR VII HUMAN\COAGULATION FACTOR X HUMAN\PROTHROMBIN
     Route: 065
  10. PANTOPRAZOLE [Concomitant]
     Active Substance: PANTOPRAZOLE
     Route: 065
  11. SUFENTANIL [Concomitant]
     Active Substance: SUFENTANIL
     Route: 065
  12. SUFENTANIL [Concomitant]
     Active Substance: SUFENTANIL
     Route: 065
  13. HEPARIN [Concomitant]
     Active Substance: HEPARIN SODIUM
     Route: 065
     Dates: start: 20170329, end: 20170329
  14. CYKLOKAPRON [Concomitant]
     Active Substance: TRANEXAMIC ACID
     Route: 065
  15. MAGNESIUM [Concomitant]
     Active Substance: MAGNESIUM
     Route: 042
  16. LACTULOSE. [Concomitant]
     Active Substance: LACTULOSE
     Route: 065
     Dates: start: 20170329, end: 20170329
  17. PROPOFOL. [Concomitant]
     Active Substance: PROPOFOL
     Route: 065
  18. PROPOFOL. [Concomitant]
     Active Substance: PROPOFOL
     Route: 065
  19. KALIUMCHLORID [Concomitant]
     Route: 065
  20. BISOPROLOL [Concomitant]
     Active Substance: BISOPROLOL
     Route: 065
  21. ATROPINE. [Concomitant]
     Active Substance: ATROPINE
     Route: 065
  22. LINSEED OIL [Concomitant]
     Active Substance: LINSEED OIL
     Route: 065
     Dates: start: 20170329, end: 20170329
  23. BISACODYL. [Concomitant]
     Active Substance: BISACODYL
     Route: 065
     Dates: start: 20170329, end: 20170329
  24. PROPOFOL. [Concomitant]
     Active Substance: PROPOFOL
     Route: 065
  25. KALIUMCHLORID [Concomitant]
     Route: 065
  26. CASTOR OIL. [Concomitant]
     Active Substance: CASTOR OIL
     Route: 065
     Dates: start: 20170329, end: 20170329
  27. HUMANALBUMIN [Concomitant]
     Active Substance: ALBUMIN HUMAN
     Route: 065
     Dates: start: 20170329, end: 20170329
  28. PROPOFOL. [Concomitant]
     Active Substance: PROPOFOL
     Route: 065
  29. SUFENTANIL [Concomitant]
     Active Substance: SUFENTANIL
     Route: 065
  30. SALBUTAMOL [Concomitant]
     Active Substance: ALBUTEROL
     Route: 065
     Dates: start: 20170328, end: 20170329

REACTIONS (4)
  - Traumatic haemothorax [Not Recovered/Not Resolved]
  - Procedural haemorrhage [Not Recovered/Not Resolved]
  - Spinal cord haemorrhage [Not Recovered/Not Resolved]
  - Fall [Not Recovered/Not Resolved]

NARRATIVE: CASE EVENT DATE: 20170328
